FAERS Safety Report 21082744 (Version 3)
Quarter: 2022Q3

REPORT INFORMATION
  Report Type: Spontaneous
  Country: CN (occurrence: CN)
  Receive Date: 20220714
  Receipt Date: 20220919
  Transmission Date: 20221027
  Serious: Yes (Other)
  Sender: FDA-Public Use
  Company Number: CN-NOVARTISPH-NVSC2022CN157250

PATIENT
  Age: 65 Year
  Sex: Female

DRUGS (1)
  1. COSENTYX [Suspect]
     Active Substance: SECUKINUMAB
     Indication: Product used for unknown indication
     Dosage: UNK
     Route: 065

REACTIONS (9)
  - Haemorrhage subcutaneous [Unknown]
  - Headache [Unknown]
  - Back pain [Unknown]
  - Neuralgia [Unknown]
  - Lymphocyte percentage decreased [Unknown]
  - Neutrophil percentage increased [Unknown]
  - Monocyte percentage decreased [Unknown]
  - Lymphocyte count decreased [Unknown]
  - Monocyte count decreased [Unknown]
